FAERS Safety Report 6510812-6 (Version None)
Quarter: 2009Q4

REPORT INFORMATION
  Report Type: 
  Country: None (occurrence: None)
  Receive Date: 20091222
  Receipt Date: 20090116
  Transmission Date: 20100525
  Serious: No
  Sender: FDA-Public Use
  Company Number: US-ASTRAZENECA-2009UW01522

PATIENT
  Age: 51 Year
  Sex: Female

DRUGS (9)
  1. CRESTOR [Suspect]
     Indication: HYPERCHOLESTEROLAEMIA
     Route: 048
     Dates: start: 20081101, end: 20081201
  2. CRESTOR [Suspect]
     Route: 048
     Dates: start: 20090102
  3. FEXOFENADINE [Concomitant]
  4. WATER PILL [Concomitant]
  5. EVENING PRIMROSE OIL [Concomitant]
  6. VITAMIN E [Concomitant]
  7. FISH OIL [Concomitant]
  8. TYLENOL (CAPLET) [Concomitant]
  9. ALEVE (CAPLET) [Concomitant]

REACTIONS (3)
  - DECREASED INTEREST [None]
  - JOINT STIFFNESS [None]
  - PAIN [None]
